FAERS Safety Report 4683149-8 (Version None)
Quarter: 2005Q2

REPORT INFORMATION
  Report Type: 
  Country: None (occurrence: None)
  Receive Date: 20050602
  Receipt Date: 20050331
  Transmission Date: 20051028
  Serious: No
  Sender: FDA-Public Use
  Company Number: USA050494661

PATIENT
  Age: 62 Year
  Sex: Male

DRUGS (1)
  1. CYMBALTA [Suspect]
     Indication: DEPRESSION
     Dosage: 60 MG
     Dates: start: 20050101

REACTIONS (4)
  - BITE [None]
  - HAEMORRHAGE [None]
  - MUSCLE TWITCHING [None]
  - TIC [None]
